FAERS Safety Report 7894943-4 (Version None)
Quarter: 2011Q4

REPORT INFORMATION
  Report Type: 
  Country: None (occurrence: None)
  Receive Date: 20111106
  Receipt Date: 20110822
  Transmission Date: 20120403
  Serious: No
  Sender: FDA-Public Use
  Company Number: US-AMGEN-USASP2011042746

PATIENT
  Age: 51 Year
  Sex: Female
  Weight: 63.492 kg

DRUGS (8)
  1. AMBIEN CR [Concomitant]
     Dosage: 12.5 MG, UNK
  2. CALCIUM + VITAMIN D [Concomitant]
  3. MULTI-VITAMIN [Concomitant]
  4. CRANBERRY [Concomitant]
     Dosage: 1000 MG, UNK
  5. ENBREL [Suspect]
     Indication: PRODUCT USED FOR UNKNOWN INDICATION
     Dosage: 50 MG, QWK
  6. TRAMADOL HCL [Concomitant]
     Dosage: 50 MG, UNK
  7. VITAMIN D [Concomitant]
     Dosage: 1000 UNK, UNK
  8. GRAPE SEED EXTRACT [Concomitant]

REACTIONS (2)
  - PRURITUS [None]
  - ERYTHEMA [None]
